FAERS Safety Report 21043860 (Version 3)
Quarter: 2022Q3

REPORT INFORMATION
  Report Type: Spontaneous
  Country: US (occurrence: US)
  Receive Date: 20220705
  Receipt Date: 20220805
  Transmission Date: 20221027
  Serious: Yes (Other)
  Sender: FDA-Public Use
  Company Number: US-Blueprint Medicines Corporation-SP-US-2022-002047

PATIENT
  Sex: Female

DRUGS (1)
  1. AYVAKIT [Suspect]
     Active Substance: AVAPRITINIB
     Indication: Systemic mastocytosis
     Route: 048
     Dates: start: 202204

REACTIONS (8)
  - Papilloedema [Unknown]
  - Idiopathic intracranial hypertension [Unknown]
  - Vision blurred [Unknown]
  - Visual impairment [Unknown]
  - Anaemia [Unknown]
  - Fatigue [Unknown]
  - Hair colour changes [Unknown]
  - Headache [Unknown]
